FAERS Safety Report 21223907 (Version 7)
Quarter: 2023Q1

REPORT INFORMATION
  Report Type: Spontaneous
  Country: DE (occurrence: DE)
  Receive Date: 20220817
  Receipt Date: 20230331
  Transmission Date: 20230418
  Serious: Yes (Life-Threatening, Disabling)
  Sender: FDA-Public Use
  Company Number: None

PATIENT
  Sex: Female
  Weight: 110 kg

DRUGS (12)
  1. HUMALOG [Interacting]
     Active Substance: INSULIN LISPRO
     Indication: Type 1 diabetes mellitus
     Dosage: UNK UNK, UNKNOWN
     Route: 065
     Dates: start: 2010
  2. LEVEMIR [Interacting]
     Active Substance: INSULIN DETEMIR
     Indication: Type 1 diabetes mellitus
     Dosage: UNK UNK, UNKNOWN
     Route: 065
     Dates: start: 2010
  3. ACTRAPID [Interacting]
     Active Substance: INSULIN HUMAN
     Indication: Type 1 diabetes mellitus
     Dosage: UNK UNK, UNKNOWN
     Route: 065
     Dates: start: 199704
  4. INSULIN HUMAN [Interacting]
     Active Substance: INSULIN HUMAN
     Indication: Type 1 diabetes mellitus
     Dosage: UNK UNK, UNKNOWN
     Route: 065
     Dates: start: 199704
  5. FIASP [Interacting]
     Active Substance: INSULIN ASPART
     Indication: Type 1 diabetes mellitus
     Dosage: 34 INTERNATIONAL UNIT, UNKNOWN (1BE 3-4IE)
     Route: 065
     Dates: start: 202010
  6. FIASP [Interacting]
     Active Substance: INSULIN ASPART
     Indication: Insulin resistance
  7. TRESIBA [Interacting]
     Active Substance: INSULIN DEGLUDEC
     Indication: Type 1 diabetes mellitus
     Dosage: 38 INTERNATIONAL UNIT, UNKNOWN
     Route: 065
     Dates: start: 202010
  8. TRESIBA [Interacting]
     Active Substance: INSULIN DEGLUDEC
     Indication: Insulin resistance
  9. MIRENA [Interacting]
     Active Substance: LEVONORGESTREL
     Indication: Iron deficiency
     Dosage: UNK UNK, UNKNOWN
     Route: 065
     Dates: start: 2007
  10. MIRENA [Interacting]
     Active Substance: LEVONORGESTREL
     Indication: Heavy menstrual bleeding
     Dosage: UNK UNK, UNKNOWN
     Route: 065
     Dates: start: 2012
  11. MIRENA [Interacting]
     Active Substance: LEVONORGESTREL
     Dosage: UNK UNK, UNKNOWN
     Route: 065
     Dates: start: 2017
  12. MIRENA [Interacting]
     Active Substance: LEVONORGESTREL
     Dosage: 20 UG, DAILY
     Route: 065
     Dates: start: 20170816

REACTIONS (13)
  - Hepatic steatosis [Not Recovered/Not Resolved]
  - Occupational exposure to air contaminants [Not Recovered/Not Resolved]
  - Abnormal weight gain [Not Recovered/Not Resolved]
  - Drug interaction [Unknown]
  - Spleen disorder [Unknown]
  - Pancreatic steatosis [Unknown]
  - Amenorrhoea [Unknown]
  - Abdominal pain lower [Unknown]
  - Insulin resistance [Unknown]
  - Mental disorder [Unknown]
  - Headache [Unknown]
  - Urine odour abnormal [Unknown]
  - Lactose intolerance [Unknown]

NARRATIVE: CASE EVENT DATE: 20200101
